FAERS Safety Report 13527980 (Version 8)
Quarter: 2022Q4

REPORT INFORMATION
  Report Type: Spontaneous
  Country: US (occurrence: US)
  Receive Date: 20170509
  Receipt Date: 20221111
  Transmission Date: 20230113
  Serious: Yes (Hospitalization, Other)
  Sender: FDA-Public Use
  Company Number: US-PFIZER INC-2017199271

PATIENT
  Age: 68 Year
  Sex: Male
  Weight: 91 kg

DRUGS (1)
  1. XELJANZ [Suspect]
     Active Substance: TOFACITINIB CITRATE
     Indication: Rheumatoid arthritis
     Dosage: 5 MG, 2X/DAY (10MG DAILY)

REACTIONS (12)
  - Pancreatitis [Not Recovered/Not Resolved]
  - Diverticulitis [Unknown]
  - Gallbladder operation [Unknown]
  - Drug ineffective [Unknown]
  - Neuralgia [Unknown]
  - Influenza like illness [Recovered/Resolved]
  - Chest discomfort [Unknown]
  - Rhinorrhoea [Unknown]
  - Dysphonia [Unknown]
  - Feeling abnormal [Unknown]
  - Condition aggravated [Unknown]
  - Muscle disorder [Unknown]

NARRATIVE: CASE EVENT DATE: 20180701
